FAERS Safety Report 11172180 (Version 1)
Quarter: 2015Q2

REPORT INFORMATION
  Report Type: Spontaneous
  Country: AR (occurrence: AR)
  Receive Date: 20150608
  Receipt Date: 20150608
  Transmission Date: 20150821
  Serious: Yes (Life-Threatening, Other)
  Sender: FDA-Public Use
  Company Number: CHPA2015AR005939

PATIENT
  Age: 57 Year
  Sex: Female

DRUGS (4)
  1. NICOTINELL [Suspect]
     Active Substance: NICOTINE
     Indication: SMOKING CESSATION THERAPY
     Dosage: UNK UNK, BID
     Route: 062
     Dates: start: 201504
  2. NICOTINELL TTS 30 [Suspect]
     Active Substance: NICOTINE
     Indication: SMOKING CESSATION THERAPY
     Dosage: 30 MG, QD
     Route: 062
     Dates: start: 201410
  3. NICOTINELL TTS 30 [Suspect]
     Active Substance: NICOTINE
     Indication: EMPHYSEMA
     Dosage: 30 UNK, UNK
     Route: 062
     Dates: start: 201504
  4. NICOTINELL TTS 30 [Suspect]
     Active Substance: NICOTINE
     Dosage: 30 MG, QD
     Route: 062
     Dates: start: 2013, end: 2013

REACTIONS (11)
  - Feeling of despair [Unknown]
  - Anxiety [Not Recovered/Not Resolved]
  - Pneumonia viral [Recovering/Resolving]
  - Gastric disorder [Unknown]
  - Chronic obstructive pulmonary disease [Not Recovered/Not Resolved]
  - Depressed mood [Unknown]
  - Anger [Unknown]
  - Logorrhoea [Not Recovered/Not Resolved]
  - Nervousness [Not Recovered/Not Resolved]
  - Malaise [Unknown]
  - Nicotine dependence [Unknown]

NARRATIVE: CASE EVENT DATE: 201504
